FAERS Safety Report 12560728 (Version 3)
Quarter: 2017Q1

REPORT INFORMATION
  Report Type: Spontaneous
  Country: US (occurrence: US)
  Receive Date: 20160715
  Receipt Date: 20170324
  Transmission Date: 20170428
  Serious: Yes (Hospitalization, Other)
  Sender: FDA-Public Use
  Company Number: US-009507513-1607USA006044

PATIENT
  Age: 26 Year
  Sex: Female
  Weight: 54.42 kg

DRUGS (4)
  1. ZOLOFT [Concomitant]
     Active Substance: SERTRALINE HYDROCHLORIDE
     Indication: DEPRESSION
     Dosage: 100 MG, QD
     Route: 048
     Dates: start: 201310
  2. TRAZODONE HYDROCHLORIDE. [Concomitant]
     Active Substance: TRAZODONE HYDROCHLORIDE
     Dosage: UNK
  3. GRASTEK [Suspect]
     Active Substance: PHLEUM PRATENSE POLLEN
     Indication: HYPERSENSITIVITY
     Dosage: 2800 BAU, QD
     Route: 060
     Dates: start: 20160621, end: 20160630
  4. DYMISTA [Concomitant]
     Active Substance: AZELASTINE HYDROCHLORIDE\FLUTICASONE PROPIONATE
     Indication: HYPERSENSITIVITY
     Dosage: 1 SPRAY, BID
     Route: 045
     Dates: start: 201605

REACTIONS (6)
  - Swollen tongue [Recovering/Resolving]
  - Pruritus generalised [Recovered/Resolved]
  - Oral pruritus [Recovered/Resolved]
  - Maternal exposure during pregnancy [Recovered/Resolved]
  - Throat tightness [Recovered/Resolved]
  - Pharyngeal oedema [Recovering/Resolving]

NARRATIVE: CASE EVENT DATE: 201606
